FAERS Safety Report 6740458-6 (Version None)
Quarter: 2010Q2

REPORT INFORMATION
  Report Type: 
  Country: None (occurrence: None)
  Receive Date: 20100525
  Receipt Date: 20100427
  Transmission Date: 20101027
  Serious: No
  Sender: FDA-Public Use
  Company Number: US-ALLERGAN-1005530US

PATIENT
  Sex: Female

DRUGS (5)
  1. ACZONE [Suspect]
     Indication: ACNE
     Dosage: UNK
  2. VALTREX [Concomitant]
  3. TAZORAC [Concomitant]
  4. FISH OIL [Concomitant]
  5. MULTI-VITAMIN [Concomitant]

REACTIONS (3)
  - LIP SWELLING [None]
  - PRURITUS [None]
  - URTICARIA [None]
